FAERS Safety Report 6369902-3 (Version None)
Quarter: 2009Q3

REPORT INFORMATION
  Report Type: 
  Country: None (occurrence: None)
  Receive Date: 20090923
  Receipt Date: 20070302
  Transmission Date: 20100115
  Serious: Yes (Other)
  Sender: FDA-Public Use
  Company Number: US-ASTRAZENECA-2006UW11160

PATIENT
  Sex: Female
  Weight: 73.9 kg

DRUGS (13)
  1. SEROQUEL [Suspect]
     Dosage: 25 - 100 MG
     Route: 048
     Dates: start: 20040313
  2. ZYPREXA [Suspect]
     Dates: start: 19970205
  3. HALDOL [Concomitant]
  4. LIPITOR [Concomitant]
     Route: 065
  5. PLAVIX [Concomitant]
     Route: 065
  6. RANITIDINE [Concomitant]
     Route: 065
  7. WELLBUTRIN [Concomitant]
     Route: 065
  8. DEPAKOTE [Concomitant]
     Route: 065
  9. ATENOLOL [Concomitant]
     Route: 065
  10. LANTUS [Concomitant]
     Route: 065
  11. LEVOXYL [Concomitant]
     Dosage: 0.175 - 100 MG
     Route: 065
  12. PHENAZOPYRIDINE HCL TAB [Concomitant]
     Route: 065
  13. FLOVENT HFA [Concomitant]
     Route: 065

REACTIONS (2)
  - DIABETES MELLITUS [None]
  - PANCREATITIS [None]
